FAERS Safety Report 11039340 (Version 2)
Quarter: 2015Q2

REPORT INFORMATION
  Report Type: Spontaneous
  Country: JP (occurrence: JP)
  Receive Date: 20150416
  Receipt Date: 20150608
  Transmission Date: 20150821
  Serious: Yes (Hospitalization)
  Sender: FDA-Public Use
  Company Number: JP-PFIZER INC-2014286524

PATIENT
  Age: 79 Year
  Sex: Female
  Weight: 45 kg

DRUGS (4)
  1. HACHIAZULE [Concomitant]
     Indication: STOMATITIS
     Dosage: 10 G, 3X/DAY
     Route: 061
     Dates: start: 20140722
  2. CELECOX [Concomitant]
     Active Substance: CELECOXIB
     Indication: PAIN
     Dosage: 100 MG, 2X/DAY
     Route: 048
     Dates: start: 20140701, end: 20150106
  3. HOCHUUEKKITOU [Concomitant]
     Active Substance: HERBALS
     Indication: MALAISE
     Dosage: 2.5 G, 3X/DAY
     Route: 048
     Dates: start: 20140819
  4. TORISEL [Suspect]
     Active Substance: TEMSIROLIMUS
     Indication: RENAL CELL CARCINOMA
     Dosage: 25 MG, DAILY
     Route: 041
     Dates: start: 20140701, end: 20140930

REACTIONS (3)
  - Malaise [Recovered/Resolved]
  - Interstitial lung disease [Recovered/Resolved]
  - Decreased appetite [Recovered/Resolved]

NARRATIVE: CASE EVENT DATE: 20140819
